FAERS Safety Report 6130163-1 (Version None)
Quarter: 2009Q1

REPORT INFORMATION
  Report Type: 
  Country: None (occurrence: None)
  Receive Date: 20090324
  Receipt Date: 20090319
  Transmission Date: 20090719
  Serious: Yes (Hospitalization)
  Sender: FDA-Public Use
  Company Number: FR-BRISTOL-MYERS SQUIBB COMPANY-14159719

PATIENT
  Age: 59 Year
  Sex: Female

DRUGS (9)
  1. SUSTIVA [Suspect]
     Dosage: ALSO TAKEN AS CONMED.
     Dates: start: 20080121, end: 20080311
  2. LOXEN LP [Suspect]
     Dates: start: 20080229, end: 20080311
  3. BACTRIM [Concomitant]
     Dates: end: 20080311
  4. TRUVADA [Concomitant]
     Dates: start: 20080121
  5. ACUPAN [Concomitant]
     Dates: start: 20080229, end: 20080304
  6. LOVENOX [Concomitant]
     Dates: start: 20080229, end: 20080320
  7. MOTILIUM [Concomitant]
     Dosage: 1 DF = 1 TAB.
     Dates: start: 20080306
  8. TRAMADOL HCL [Concomitant]
     Dates: start: 20080305, end: 20080310
  9. FUNGIZONE [Concomitant]
     Dates: start: 20080305

REACTIONS (6)
  - CHILLS [None]
  - CHOLELITHIASIS [None]
  - HAEMOGLOBINURIA [None]
  - HEPATITIS [None]
  - HYPERTENSION [None]
  - PROTEINURIA [None]
